FAERS Safety Report 17343362 (Version 1)
Quarter: 2020Q1

REPORT INFORMATION
  Report Type: Spontaneous
  Country: FR (occurrence: FR)
  Receive Date: 20200129
  Receipt Date: 20200129
  Transmission Date: 20200409
  Serious: Yes (Life-Threatening, Hospitalization, Other)
  Sender: FDA-Public Use
  Company Number: FR-SA-2020SA023001

PATIENT
  Age: 30 Year
  Sex: Male

DRUGS (1)
  1. CLOMID [Suspect]
     Active Substance: CLOMIPHENE CITRATE
     Dosage: 3 DF
     Route: 048
     Dates: start: 20200102, end: 20200103

REACTIONS (5)
  - Arrhythmia [Recovered/Resolved]
  - Intentional product misuse [Recovering/Resolving]
  - Chest pain [Recovered/Resolved]
  - Performance enhancing product use [Recovering/Resolving]
  - Cardio-respiratory arrest [Recovered/Resolved]

NARRATIVE: CASE EVENT DATE: 20200102
